FAERS Safety Report 7168052-6 (Version None)
Quarter: 2010Q4

REPORT INFORMATION
  Report Type: 
  Country: None (occurrence: None)
  Receive Date: 20101216
  Receipt Date: 20101209
  Transmission Date: 20110411
  Serious: Yes (Hospitalization)
  Sender: FDA-Public Use
  Company Number: BE-MEDIMMUNE-MEDI-0011967

PATIENT

DRUGS (1)
  1. SYNAGIS [Suspect]

REACTIONS (2)
  - APNOEA [None]
  - OXYGEN SATURATION DECREASED [None]
